FAERS Safety Report 5937966-4 (Version None)
Quarter: 2008Q4

REPORT INFORMATION
  Report Type: 
  Country: None (occurrence: None)
  Receive Date: 20081031
  Receipt Date: 20081027
  Transmission Date: 20090506
  Serious: Yes (Death, Other)
  Sender: FDA-Public Use
  Company Number: HQWYE172322SEP04

PATIENT
  Sex: Female

DRUGS (3)
  1. PREMPRO [Suspect]
     Dosage: 0.625MG/2.5MG DAILY
     Route: 048
     Dates: start: 19961203, end: 19990901
  2. PROVERA [Suspect]
     Dosage: UNSPECIFIED
     Route: 048
     Dates: start: 19930501, end: 19961201
  3. PREMARIN [Suspect]
     Dosage: UNKNOWN
     Dates: start: 19930511, end: 19961201

REACTIONS (1)
  - BREAST CANCER METASTATIC [None]
